FAERS Safety Report 23780669 (Version 2)
Quarter: 2024Q2

REPORT INFORMATION
  Report Type: Spontaneous
  Country: US (occurrence: US)
  Receive Date: 20240425
  Receipt Date: 20240529
  Transmission Date: 20240716
  Serious: No
  Sender: FDA-Public Use
  Company Number: US-ViiV Healthcare Limited-110312

PATIENT
  Age: 3 Year
  Sex: Male

DRUGS (1)
  1. TRIUMEQ [Suspect]
     Active Substance: ABACAVIR SULFATE\DOLUTEGRAVIR SODIUM\LAMIVUDINE
     Indication: Product used for unknown indication
     Dosage: UNK (60MG/5MG/30MG 1X90 )

REACTIONS (4)
  - Retching [Unknown]
  - Incorrect dose administered [Unknown]
  - Product use complaint [Unknown]
  - Product complaint [Unknown]
